FAERS Safety Report 12266484 (Version 1)
Quarter: 2016Q2

REPORT INFORMATION
  Report Type: Spontaneous
  Country: US (occurrence: US)
  Receive Date: 20160414
  Receipt Date: 20160414
  Transmission Date: 20160815
  Serious: Yes (Hospitalization)
  Sender: FDA-Public Use
  Company Number: US-BEH-2016061126

PATIENT
  Age: 68 Year
  Sex: Male
  Weight: 85 kg

DRUGS (19)
  1. SILDENAFIL. [Concomitant]
     Active Substance: SILDENAFIL
  2. XOLAIR [Concomitant]
     Active Substance: OMALIZUMAB
  3. OXYGEN. [Concomitant]
     Active Substance: OXYGEN
  4. DIPHENHYDRAMINE. [Concomitant]
     Active Substance: DIPHENHYDRAMINE
  5. SODIUM CHLORIDE. [Concomitant]
     Active Substance: SODIUM CHLORIDE
  6. COUMADIN [Concomitant]
     Active Substance: WARFARIN SODIUM
  7. PERFOROMIST [Concomitant]
     Active Substance: FORMOTEROL FUMARATE DIHYDRATE
  8. BUDESONIDE. [Concomitant]
     Active Substance: BUDESONIDE
  9. ZEMAIRA [Suspect]
     Active Substance: .ALPHA.1-PROTEINASE INHIBITOR HUMAN
     Indication: ALPHA-1 ANTI-TRYPSIN DEFICIENCY
     Route: 042
  10. XOPENEX [Concomitant]
     Active Substance: LEVALBUTEROL HYDROCHLORIDE
  11. VITAMINS [Concomitant]
     Active Substance: VITAMINS
  12. NASONEX [Concomitant]
     Active Substance: MOMETASONE FUROATE
  13. EPIPEN [Concomitant]
     Active Substance: EPINEPHRINE
  14. LEXAPRO [Concomitant]
     Active Substance: ESCITALOPRAM OXALATE
  15. LISINOPRIL-HCTZ [Concomitant]
     Active Substance: HYDROCHLOROTHIAZIDE\LISINOPRIL
  16. BENADRYL [Concomitant]
     Active Substance: DIPHENHYDRAMINE HYDROCHLORIDE
  17. MONTELUKAST [Concomitant]
     Active Substance: MONTELUKAST SODIUM
  18. RISPERIDONE. [Concomitant]
     Active Substance: RISPERIDONE
  19. LASIX [Concomitant]
     Active Substance: FUROSEMIDE

REACTIONS (1)
  - Asthma [Unknown]

NARRATIVE: CASE EVENT DATE: 20160315
